FAERS Safety Report 9225032 (Version 1)
Quarter: 2013Q2

REPORT INFORMATION
  Report Type: Spontaneous
  Country: IT (occurrence: None)
  Receive Date: 20130409
  Receipt Date: 20130409
  Transmission Date: 20140414
  Serious: No
  Sender: FDA-Public Use
  Company Number: 1304ITA000095

PATIENT
  Age: 66 Year
  Sex: Female

DRUGS (1)
  1. ISOCEF [Suspect]
     Indication: RESPIRATORY TRACT INFECTION
     Route: 048
     Dates: start: 20130310, end: 20130311

REACTIONS (1)
  - Dermatitis [None]
